FAERS Safety Report 16432229 (Version 1)
Quarter: 2019Q3

REPORT INFORMATION
  Report Type: Spontaneous
  Country: US (occurrence: US)
  Receive Date: 20190614
  Receipt Date: 20190614
  Transmission Date: 20191004
  Serious: Yes (Life-Threatening, Hospitalization, Disabling)
  Sender: FDA-Public Use
  Company Number: None

PATIENT
  Age: 47 Year
  Sex: Female

DRUGS (1)
  1. GABAPENTIN. [Suspect]
     Active Substance: GABAPENTIN
     Indication: CRYOGLOBULINAEMIA
     Route: 048
     Dates: start: 20190521, end: 20190602

REACTIONS (8)
  - Suicidal ideation [None]
  - Confusional state [None]
  - Weight increased [None]
  - Irritability [None]
  - Depression [None]
  - Pancreatitis [None]
  - Dizziness [None]
  - Balance disorder [None]

NARRATIVE: CASE EVENT DATE: 20190531
